FAERS Safety Report 10913628 (Version 3)
Quarter: 2020Q4

REPORT INFORMATION
  Report Type: Report from Study
  Country: None (occurrence: AU)
  Receive Date: 20150313
  Receipt Date: 20201113
  Transmission Date: 20210113
  Serious: Yes (Death, Hospitalization, Other)
  Sender: FDA-Public Use
  Company Number: AU-ABBVIE-13P-008-1044406-00

PATIENT
  Age: 60 Year
  Sex: Male

DRUGS (2)
  1. DUODOPA [Suspect]
     Active Substance: CARBIDOPA\LEVODOPA
     Indication: PRODUCT USED FOR UNKNOWN INDICATION
     Route: 050
     Dates: start: 20080427, end: 20130201
  2. DUODOPA [Suspect]
     Active Substance: CARBIDOPA\LEVODOPA

REACTIONS (10)
  - Cardiac arrest [Fatal]
  - Seizure [Unknown]
  - Intestinal obstruction [Unknown]
  - Abdominal pain [Unknown]
  - Small intestinal haemorrhage [Fatal]
  - Dyskinesia [Unknown]
  - Aspiration [Fatal]
  - Intestinal ischaemia [Unknown]
  - Hypoxia [Fatal]
  - Vomiting [Fatal]

NARRATIVE: CASE EVENT DATE: 20130201
